FAERS Safety Report 17856280 (Version 1)
Quarter: 2020Q2

REPORT INFORMATION
  Report Type: Other
  Country: IE (occurrence: IE)
  Receive Date: 20200603
  Receipt Date: 20200603
  Transmission Date: 20200714
  Serious: Yes (Hospitalization, Other)
  Sender: FDA-Public Use
  Company Number: IE-INNOGENIX, LLC-2085418

PATIENT
  Age: 48 Year
  Sex: Female

DRUGS (2)
  1. PROPRANOLOL HYDROCHLORIDE. [Suspect]
     Active Substance: PROPRANOLOL HYDROCHLORIDE
     Indication: HYPERTENSION
  2. CLONIDINE. [Suspect]
     Active Substance: CLONIDINE
     Route: 065

REACTIONS (7)
  - Acute kidney injury [Recovered/Resolved]
  - Coma [Recovered/Resolved]
  - Withdrawal hypertension [Recovered/Resolved]
  - Hypertensive crisis [Recovered/Resolved]
  - Polycythaemia [Recovered/Resolved]
  - Pneumonia aspiration [Recovered/Resolved]
  - Posterior reversible encephalopathy syndrome [Recovered/Resolved]
